FAERS Safety Report 21395286 (Version 3)
Quarter: 2022Q4

REPORT INFORMATION
  Report Type: Spontaneous
  Country: IN (occurrence: IN)
  Receive Date: 20220930
  Receipt Date: 20221209
  Transmission Date: 20230113
  Serious: Yes (Other)
  Sender: FDA-Public Use
  Company Number: IN-CIPLA LTD.-2022IN05785

PATIENT
  Sex: Female

DRUGS (6)
  1. LEVETIRACETAM [Suspect]
     Active Substance: LEVETIRACETAM
     Indication: Epilepsy
     Dosage: UNK, 5 MONTHS
     Route: 065
     Dates: start: 2022
  2. LEVETIRACETAM [Suspect]
     Active Substance: LEVETIRACETAM
     Dosage: 3 MILLILITER, BID (3 ML IN MORNING AND EVENING)
     Route: 048
     Dates: start: 202208, end: 202209
  3. VALPROL CR [Concomitant]
     Indication: Epilepsy
     Dosage: 400 MILLIGRAM, QD, ONCE AT NIGHT (FROM 6-7 MONTHS)
     Route: 065
     Dates: start: 2022
  4. VALPROL CR [Concomitant]
     Dosage: 300 MILLIGRAM, QD, ONCE IN THE MORNING (FROM 6-7 MONTHS)
     Route: 065
     Dates: start: 2022
  5. ETHOSUXIMIDE [Concomitant]
     Active Substance: ETHOSUXIMIDE
     Indication: Epilepsy
     Dosage: 4 MILLILITER, TID (FROM 2 YEARS)
     Route: 065
  6. CLOTAS [Concomitant]
     Indication: Sleep disorder
     Dosage: UNK, 0.25/NP, FROM 8 MONTHS
     Route: 065
     Dates: start: 2022

REACTIONS (6)
  - Seizure [Recovered/Resolved]
  - Product packaging issue [Unknown]
  - Suspected counterfeit product [Unknown]
  - Product label issue [Unknown]
  - Aggression [Recovered/Resolved]
  - Headache [Recovered/Resolved]

NARRATIVE: CASE EVENT DATE: 20220101
